FAERS Safety Report 6679286-9 (Version None)
Quarter: 2010Q2

REPORT INFORMATION
  Report Type: 
  Country: None (occurrence: None)
  Receive Date: 20100409
  Receipt Date: 20100330
  Transmission Date: 20101027
  Serious: Yes (Hospitalization)
  Sender: FDA-Public Use
  Company Number: 552478

PATIENT
  Age: 39 Year
  Sex: Male
  Weight: 75 kg

DRUGS (11)
  1. (VINCRISTINE SULFATE) [Suspect]
     Indication: BURKITT'S LYMPHOMA
     Dosage: 2 MG, INJECTION
  2. (RITONAVIR) [Suspect]
     Indication: HIV INFECTION
     Dosage: 100 MG
  3. (LOPINAVIR) [Suspect]
     Indication: HIV INFECTION
     Dosage: 400 MG
  4. ABACAVIR [Suspect]
     Indication: HIV INFECTION
     Dosage: 600 MG
  5. (LAMIVUDINE) [Concomitant]
  6. (CO-TRIMOXAZOLE /00086101/) [Concomitant]
  7. (VALACICLOVIR) [Concomitant]
  8. CYCLOPHOSPHAMIDE [Concomitant]
  9. DOXORUBICIN HCL [Concomitant]
  10. METHOTREXATE [Concomitant]
  11. CYTARABINE [Concomitant]

REACTIONS (2)
  - DRUG INTERACTION [None]
  - ILEUS PARALYTIC [None]
